FAERS Safety Report 8622240-8 (Version None)
Quarter: 2012Q3

REPORT INFORMATION
  Report Type: 
  Country: None (occurrence: None)
  Receive Date: 20120827
  Receipt Date: 20120817
  Transmission Date: 20120928
  Serious: Yes (Hospitalization, Other)
  Sender: FDA-Public Use
  Company Number: AU-AMGEN-AUSSP2012034083

PATIENT
  Age: 76 Year
  Sex: Male

DRUGS (9)
  1. IRBESARTAN + HYDROCHLOROTHIAZIDE [Concomitant]
     Dosage: UNK
     Dates: end: 20120325
  2. CHOLECALCIFEROL [Concomitant]
     Dosage: UNK UNIT, UNK
  3. CALCIUM CARBONATE [Concomitant]
     Dosage: 1200 MG, UNK
  4. XGEVA [Suspect]
     Indication: PROSTATE CANCER METASTATIC
     Dosage: 120 MG, Q4WK
     Route: 058
     Dates: start: 20120201
  5. ZOLADEX [Concomitant]
     Dosage: 10.8 MG, Q3MO
  6. ORTERONEL [Concomitant]
     Indication: PROSTATE CANCER
     Dosage: UNK
     Dates: end: 20120318
  7. VITAMIN D [Concomitant]
     Indication: PROPHYLAXIS
     Route: 048
  8. CALCIUM [Concomitant]
  9. INVESTIGATIONAL DRUG [Concomitant]

REACTIONS (6)
  - TETANY [None]
  - HYPOCALCAEMIA [None]
  - MUSCLE SPASMS [None]
  - CONVULSION [None]
  - MUSCLE TWITCHING [None]
  - HUNGRY BONE SYNDROME [None]
